FAERS Safety Report 18933247 (Version 3)
Quarter: 2021Q3

REPORT INFORMATION
  Report Type: Spontaneous
  Country: US (occurrence: US)
  Receive Date: 20210224
  Receipt Date: 20210812
  Transmission Date: 20211014
  Serious: No
  Sender: FDA-Public Use
  Company Number: US-GLAXOSMITHKLINE-US2021044064

PATIENT
  Sex: Female

DRUGS (2)
  1. BENLYSTA [Suspect]
     Active Substance: BELIMUMAB
     Indication: SYSTEMIC LUPUS ERYTHEMATOSUS
     Dosage: 200 MG/ML, WE
     Route: 058
  2. BENLYSTA [Concomitant]
     Active Substance: BELIMUMAB
     Indication: SYSTEMIC LUPUS ERYTHEMATOSUS
     Dosage: UNK

REACTIONS (9)
  - Therapeutic response shortened [Unknown]
  - Wrong technique in device usage process [Unknown]
  - Restlessness [Unknown]
  - Asthenia [Unknown]
  - Injection site pain [Recovered/Resolved]
  - Fatigue [Unknown]
  - Sleep disorder [Unknown]
  - Hot flush [Unknown]
  - Pain in extremity [Unknown]
